FAERS Safety Report 5759670-8 (Version None)
Quarter: 2008Q2

REPORT INFORMATION
  Report Type: 
  Country: None (occurrence: None)
  Receive Date: 20080605
  Receipt Date: 20080526
  Transmission Date: 20081010
  Serious: Yes (Congenital Anomaly, Other)
  Sender: FDA-Public Use
  Company Number: GB-ABBOTT-08P-167-0453746-00

PATIENT
  Sex: Male

DRUGS (1)
  1. VALPROATE SODIUM [Suspect]
     Indication: DRUG EXPOSURE DURING PREGNANCY
     Route: 064

REACTIONS (7)
  - ARTHRALGIA [None]
  - ASTIGMATISM [None]
  - DRUG EXPOSURE DURING PREGNANCY [None]
  - FEBRILE CONVULSION [None]
  - INGUINAL HERNIA [None]
  - MUSCULOSKELETAL STIFFNESS [None]
  - UMBILICAL CORD AROUND NECK [None]
